FAERS Safety Report 7323627-6 (Version None)
Quarter: 2011Q1

REPORT INFORMATION
  Report Type: 
  Country: None (occurrence: None)
  Receive Date: 20110301
  Receipt Date: 20110223
  Transmission Date: 20110831
  Serious: Yes (Hospitalization, Other)
  Sender: FDA-Public Use
  Company Number: US-JNJFOC-20100805643

PATIENT
  Sex: Male

DRUGS (1)
  1. LEVOFLOXACIN [Suspect]
     Indication: INFECTION
     Route: 048

REACTIONS (7)
  - EPICONDYLITIS [None]
  - ROTATOR CUFF SYNDROME [None]
  - TENDON DISORDER [None]
  - ARTHRALGIA [None]
  - JOINT INJURY [None]
  - TENDONITIS [None]
  - TENDON RUPTURE [None]
